FAERS Safety Report 11112727 (Version 2)
Quarter: 2015Q3

REPORT INFORMATION
  Report Type: Report from Study
  Country: US (occurrence: US)
  Receive Date: 20150514
  Receipt Date: 20150715
  Transmission Date: 20151125
  Serious: Yes (Hospitalization, Other)
  Sender: FDA-Public Use
  Company Number: US-GILEAD-2015-0152481

PATIENT
  Age: 17 Year
  Sex: Female
  Weight: 52.1 kg

DRUGS (35)
  1. DRONABINOL. [Concomitant]
     Active Substance: DRONABINOL
  2. IMITREX [Concomitant]
     Active Substance: SUMATRIPTAN\SUMATRIPTAN SUCCINATE
  3. MEPHYTON [Concomitant]
     Active Substance: PHYTONADIONE
  4. FERROUS SULFATE [Concomitant]
     Active Substance: FERROUS SULFATE\FERROUS SULFATE, DRIED
  5. LMX4 [Concomitant]
     Active Substance: LIDOCAINE
  6. AZTREONAM LYSINE [Suspect]
     Active Substance: AZTREONAM LYSINE
     Indication: PSEUDOMONAS INFECTION
  7. AMBISOME [Concomitant]
     Active Substance: AMPHOTERICIN B
  8. AFRIN [Concomitant]
     Active Substance: OXYMETAZOLINE
  9. AQUADEKS                           /07679501/ [Concomitant]
  10. CULTURELLE [Concomitant]
     Active Substance: LACTOBACILLUS RHAMNOSUS
  11. ESOMEPRAZOLE MAGNESIUM. [Concomitant]
     Active Substance: ESOMEPRAZOLE MAGNESIUM
  12. PROVENTIL HFA                      /00139501/ [Concomitant]
  13. DELSYM [Concomitant]
     Active Substance: DEXTROMETHORPHAN
     Indication: COUGH
  14. MICROVASIVE FEEDING PUMP [Concomitant]
  15. ALBUTEROL SULFATE. [Concomitant]
     Active Substance: ALBUTEROL SULFATE
  16. AZITHROMYCIN [Concomitant]
     Active Substance: AZITHROMYCIN ANHYDROUS
  17. CYPROHEPTADINE. [Concomitant]
     Active Substance: CYPROHEPTADINE
  18. FLUTICASONE [Concomitant]
     Active Substance: FLUTICASONE\FLUTICASONE PROPIONATE
  19. TWOCAL HN [Concomitant]
  20. VITAMIN D 2000 [Concomitant]
  21. ZOFRAN [Concomitant]
     Active Substance: ONDANSETRON HYDROCHLORIDE
  22. TYLENOL [Concomitant]
     Active Substance: ACETAMINOPHEN
     Indication: HEADACHE
  23. VEST                               /02053501/ [Concomitant]
  24. ONETOUCH DELICA LANCETS [Concomitant]
  25. AZTREONAM LYSINE [Suspect]
     Active Substance: AZTREONAM LYSINE
     Indication: CYSTIC FIBROSIS
     Dosage: 75 MG, TID EVERY 28 DAYS ON/OFF
     Route: 055
     Dates: start: 20141105
  26. COLISTIMETHATE [Concomitant]
     Active Substance: COLISTIMETHATE SODIUM
     Indication: CYSTIC FIBROSIS
     Dosage: 150 MG, UNK
     Route: 055
     Dates: start: 20130927
  27. CREON [Concomitant]
     Active Substance: PANCRELIPASE AMYLASE\PANCRELIPASE LIPASE\PANCRELIPASE PROTEASE
  28. MICAFUNGIN [Concomitant]
     Active Substance: MICAFUNGIN
  29. OS-CAL 500 + D [Concomitant]
  30. HUMALOG [Concomitant]
     Active Substance: INSULIN LISPRO
  31. NOVOLOG [Concomitant]
     Active Substance: INSULIN ASPART
  32. PULMOZYME [Concomitant]
     Active Substance: DORNASE ALFA
  33. ZALEPLON. [Concomitant]
     Active Substance: ZALEPLON
  34. SINUS RINSE [Concomitant]
  35. LIQUID OXYGEN [Concomitant]
     Active Substance: OXYGEN

REACTIONS (2)
  - Lung transplant [Unknown]
  - Cystic fibrosis [Unknown]
